FAERS Safety Report 16654991 (Version 2)
Quarter: 2019Q3

REPORT INFORMATION
  Report Type: Report from Study
  Country: US (occurrence: US)
  Receive Date: 20190801
  Receipt Date: 20190807
  Transmission Date: 20191004
  Serious: Yes (Other)
  Sender: FDA-Public Use
  Company Number: US-ROCHE-2364198

PATIENT
  Sex: Female

DRUGS (1)
  1. OCREVUS [Suspect]
     Active Substance: OCRELIZUMAB
     Indication: RELAPSING MULTIPLE SCLEROSIS
     Dosage: ONGOING : UNKNOWN?17/DEC/2018, JAN/2019, AND 29/JUL//2019 RECEIVED OCRELIZUMAB TREATMENT.
     Route: 065
     Dates: start: 20181203

REACTIONS (4)
  - Urinary tract infection [Recovered/Resolved]
  - Stress [Unknown]
  - Pneumonia [Recovered/Resolved]
  - Confusional state [Unknown]

NARRATIVE: CASE EVENT DATE: 2019
